FAERS Safety Report 18664335 (Version 1)
Quarter: 2020Q4

REPORT INFORMATION
  Report Type: Report from Study
  Country: FR (occurrence: FR)
  Receive Date: 20201225
  Receipt Date: 20201225
  Transmission Date: 20210114
  Serious: Yes (Hospitalization)
  Sender: FDA-Public Use
  Company Number: FR-BAUSCH-BL-2020-037328

PATIENT
  Age: 28 Year
  Sex: Female

DRUGS (4)
  1. PREDNISOLONE. [Suspect]
     Active Substance: PREDNISOLONE
     Indication: INFLAMMATORY BOWEL DISEASE
     Route: 065
     Dates: start: 20181011
  2. INFLIXIMAB RECOMBINANT [Suspect]
     Active Substance: INFLIXIMAB
     Indication: INFLAMMATORY BOWEL DISEASE
     Route: 042
     Dates: start: 20181017
  3. 5-ASA [Suspect]
     Active Substance: MESALAMINE
     Indication: INFLAMMATORY BOWEL DISEASE
     Route: 065
     Dates: start: 20181023
  4. 6-MERCAPTOPURINE MONOHYDRATE [Suspect]
     Active Substance: MERCAPTOPURINE
     Indication: INFLAMMATORY BOWEL DISEASE
     Route: 065

REACTIONS (1)
  - Adrenal insufficiency [Recovered/Resolved]

NARRATIVE: CASE EVENT DATE: 20181207
